FAERS Safety Report 6398270-6 (Version None)
Quarter: 2009Q4

REPORT INFORMATION
  Report Type: 
  Country: None (occurrence: None)
  Receive Date: 20091013
  Receipt Date: 20080324
  Transmission Date: 20100525
  Serious: Yes (Life-Threatening, Hospitalization, Other)
  Sender: FDA-Public Use
  Company Number: US-NOVOPROD-270431

PATIENT
  Sex: Female
  Weight: 96.6 kg

DRUGS (12)
  1. NORDITROPIN NORDIFLEX [Suspect]
     Indication: HAEMODIALYSIS
     Dosage: 2 MG, QD
     Route: 058
     Dates: start: 20071012, end: 20071204
  2. NORDITROPIN NORDIFLEX [Suspect]
     Dosage: 2 MG, QD
     Route: 058
     Dates: start: 20071212, end: 20071219
  3. NORDITROPIN NORDIFLEX [Suspect]
     Dosage: 2 MG, QD
     Route: 058
     Dates: start: 20080109
  4. FOSRENOL [Concomitant]
     Indication: HYPERPHOSPHATAEMIA
     Dosage: 3000 MG, QD
     Route: 048
     Dates: start: 20070810
  5. AGGRENOX [Concomitant]
     Indication: CEREBRAL ARTERIOSCLEROSIS
     Dosage: 2 CAPS, QD
     Route: 048
     Dates: start: 20070720
  6. DIOVAN                             /01319601/ [Concomitant]
     Indication: CARDIAC FAILURE
     Dosage: 160 MG, QD
     Route: 048
     Dates: start: 20070203
  7. DILTIAZEM [Concomitant]
     Indication: HYPERTENSION
     Dosage: 240 MG, QD
     Route: 048
     Dates: start: 20070203
  8. HUMULIN                            /00646001/ [Concomitant]
     Indication: INSULIN-REQUIRING TYPE 2 DIABETES MELLITUS
     Dosage: 40 U, QD
     Route: 058
     Dates: start: 20070203
  9. ZEMPLAR [Concomitant]
     Indication: HYPERPARATHYROIDISM
     Route: 042
     Dates: start: 20070720
  10. EPOETIN ALFA [Concomitant]
     Indication: ANAEMIA
     Route: 042
     Dates: start: 20070706
  11. SODIUM BICARBONATE IN PLASTIC CONTAINER [Concomitant]
     Indication: GASTRIC ULCER
     Route: 048
     Dates: start: 20070523
  12. VENOFER [Concomitant]
     Indication: RENAL FAILURE CHRONIC
     Dates: start: 20070327

REACTIONS (3)
  - ATRIAL FIBRILLATION [None]
  - CARDIAC FAILURE [None]
  - PNEUMONIA [None]
